FAERS Safety Report 4915413-9 (Version None)
Quarter: 2006Q1

REPORT INFORMATION
  Report Type: 
  Country: None (occurrence: None)
  Receive Date: 20060217
  Receipt Date: 20051003
  Transmission Date: 20060701
  Serious: Yes (Hospitalization)
  Sender: FDA-Public Use
  Company Number: US-MERCK-0510USA02585

PATIENT
  Age: 66 Year
  Sex: Female

DRUGS (1)
  1. VIOXX [Suspect]
     Route: 048

REACTIONS (18)
  - ANGIOMYOLIPOMA [None]
  - ASTHENIA [None]
  - CAROTID ARTERY STENOSIS [None]
  - CEREBROVASCULAR ACCIDENT [None]
  - CHEST DISCOMFORT [None]
  - DIABETES MELLITUS NON-INSULIN-DEPENDENT [None]
  - EMPHYSEMA [None]
  - HYPERTENSION [None]
  - IRON DEFICIENCY ANAEMIA [None]
  - ISCHAEMIC STROKE [None]
  - LYMPHADENOPATHY MEDIASTINAL [None]
  - MUSCULOSKELETAL CHEST PAIN [None]
  - OSTEOARTHRITIS [None]
  - PAIN [None]
  - PERICARDIAL EFFUSION [None]
  - PLEURAL EFFUSION [None]
  - RENAL CYST [None]
  - WRONG TECHNIQUE IN DRUG USAGE PROCESS [None]
